FAERS Safety Report 7742278-2 (Version None)
Quarter: 2011Q3

REPORT INFORMATION
  Report Type: 
  Country: None (occurrence: None)
  Receive Date: 20110912
  Receipt Date: 20110831
  Transmission Date: 20111222
  Serious: Yes (Hospitalization, Other)
  Sender: FDA-Public Use
  Company Number: US-BAYER-2011-009472

PATIENT
  Age: 33 Year
  Sex: Female
  Weight: 98 kg

DRUGS (13)
  1. YASMIN [Suspect]
     Indication: PREMENSTRUAL SYNDROME
  2. LORAZEPAM [Concomitant]
  3. MULTI-VITAMIN [Concomitant]
  4. PRAVACHOL [Concomitant]
  5. VOLTAREN [Concomitant]
  6. YASMIN [Suspect]
     Indication: ACNE
     Dosage: UNK
     Route: 048
     Dates: start: 20040101, end: 20050101
  7. BENTYL [Concomitant]
  8. ATIVAN [Concomitant]
  9. PREVACID [Concomitant]
  10. TRIAMTERENE [Concomitant]
  11. LISINOPRIL [Concomitant]
  12. LORTAB [Concomitant]
  13. RELPAX [Concomitant]

REACTIONS (6)
  - PAIN [None]
  - CHOLELITHIASIS [None]
  - CHOLECYSTITIS CHRONIC [None]
  - ABDOMINAL PAIN [None]
  - MYOCARDIAL INFARCTION [None]
  - INJURY [None]
